FAERS Safety Report 4566350-3 (Version None)
Quarter: 2005Q1

REPORT INFORMATION
  Report Type: 
  Country: None (occurrence: None)
  Receive Date: 20050201
  Receipt Date: 20050104
  Transmission Date: 20050727
  Serious: Yes (Hospitalization)
  Sender: FDA-Public Use
  Company Number: 200510059FR

PATIENT
  Age: 44 Year
  Sex: Female

DRUGS (4)
  1. ARAVA [Suspect]
     Indication: RHEUMATOID ARTHRITIS
     Route: 048
     Dates: start: 20041013, end: 20041022
  2. PLAQUENIL [Suspect]
     Route: 048
     Dates: start: 20041022, end: 20041108
  3. TANGANIL [Suspect]
     Route: 048
     Dates: start: 20041022, end: 20041108
  4. UNKNOWN DRUG [Concomitant]

REACTIONS (4)
  - GENERAL PHYSICAL HEALTH DETERIORATION [None]
  - HYPERTHERMIA [None]
  - RASH PAPULAR [None]
  - RASH PUSTULAR [None]
